FAERS Safety Report 9736807 (Version 1)
Quarter: 2013Q4

REPORT INFORMATION
  Report Type: Spontaneous
  Country: US (occurrence: US)
  Receive Date: 20131206
  Receipt Date: 20131206
  Transmission Date: 20140711
  Serious: No
  Sender: FDA-Public Use
  Company Number: US-BIOGENIDEC-2013BI090505

PATIENT
  Age: 59 Year
  Sex: Female
  Weight: 80 kg

DRUGS (14)
  1. TECFIDERA [Suspect]
     Indication: MULTIPLE SCLEROSIS
     Route: 048
     Dates: start: 20130726, end: 20130801
  2. TECFIDERA [Suspect]
     Indication: MULTIPLE SCLEROSIS
     Route: 048
     Dates: start: 20130802
  3. AMPYRA [Concomitant]
     Dates: start: 20130911
  4. ASA [Concomitant]
  5. ATORVASTATIN [Concomitant]
  6. BACLOFEN [Concomitant]
  7. ENALAPRIL [Concomitant]
  8. FISH OIL [Concomitant]
  9. METFORMIN [Concomitant]
  10. MUTLIVITAMIN [Concomitant]
  11. OSCAL WITH VITAMIN D3 [Concomitant]
  12. PAXIL [Concomitant]
  13. VITAMIN B12 [Concomitant]
  14. ZOLPIDEM [Concomitant]

REACTIONS (9)
  - Local swelling [Not Recovered/Not Resolved]
  - Pharyngeal oedema [Not Recovered/Not Resolved]
  - Confusional state [Unknown]
  - Fatigue [Unknown]
  - Peripheral coldness [Unknown]
  - Hypoaesthesia [Not Recovered/Not Resolved]
  - Rash [Recovered/Resolved]
  - Flushing [Not Recovered/Not Resolved]
  - Feeling hot [Unknown]
